FAERS Safety Report 5377729-4 (Version None)
Quarter: 2007Q3

REPORT INFORMATION
  Report Type: 
  Country: None (occurrence: None)
  Receive Date: 20070703
  Receipt Date: 20070621
  Transmission Date: 20080115
  Serious: Yes (Other)
  Sender: FDA-Public Use
  Company Number: FR-PFIZER INC-2007046416

PATIENT
  Age: 45 Year
  Sex: Female

DRUGS (1)
  1. SUTENT [Suspect]
     Indication: METASTATIC RENAL CELL CARCINOMA
     Dosage: DAILY DOSE:50MG

REACTIONS (4)
  - HYPERBILIRUBINAEMIA [None]
  - JAUNDICE [None]
  - LIVER DISORDER [None]
  - THROMBOCYTOPENIA [None]
